FAERS Safety Report 13664863 (Version 4)
Quarter: 2017Q3

REPORT INFORMATION
  Report Type: Report from Study
  Country: US (occurrence: US)
  Receive Date: 20170619
  Receipt Date: 20170726
  Transmission Date: 20171127
  Serious: Yes (Other)
  Sender: FDA-Public Use
  Company Number: US-GILEAD-2017-0254720

PATIENT
  Age: 66 Year
  Sex: Male
  Weight: 69.4 kg

DRUGS (27)
  1. UPTRAVI [Suspect]
     Active Substance: SELEXIPAG
     Dosage: 400 UG, QD
     Route: 065
  2. TEMOVATE [Concomitant]
     Active Substance: CLOBETASOL PROPIONATE
  3. OXYGEN. [Concomitant]
     Active Substance: OXYGEN
  4. SALINE                             /00075401/ [Concomitant]
     Active Substance: SODIUM CHLORIDE
  5. VALTREX [Concomitant]
     Active Substance: VALACYCLOVIR HYDROCHLORIDE
  6. KLONOPIN [Concomitant]
     Active Substance: CLONAZEPAM
  7. INSPRA [Concomitant]
     Active Substance: EPLERENONE
  8. UPTRAVI [Suspect]
     Active Substance: SELEXIPAG
     Dosage: 800 UG, UNK
     Route: 065
  9. UPTRAVI [Suspect]
     Active Substance: SELEXIPAG
     Dosage: 600 UG, UNK
     Route: 065
     Dates: start: 20170203
  10. PLAVIX [Concomitant]
     Active Substance: CLOPIDOGREL BISULFATE
  11. LASIX [Concomitant]
     Active Substance: FUROSEMIDE
  12. MAGNESIUM                          /00082501/ [Concomitant]
     Active Substance: ALUMINUM HYDROXIDE\MAGNESIUM HYDROXIDE
  13. AMBRISENTAN [Suspect]
     Active Substance: AMBRISENTAN
     Indication: PULMONARY ARTERIAL HYPERTENSION
     Dosage: 10 MG, QD
     Route: 048
     Dates: start: 20161004
  14. UPTRAVI [Suspect]
     Active Substance: SELEXIPAG
     Indication: PRODUCT USED FOR UNKNOWN INDICATION
     Dosage: 400UG IN AM 600 UG IN PM
     Route: 048
  15. UPTRAVI [Suspect]
     Active Substance: SELEXIPAG
     Dosage: UNK
     Route: 065
     Dates: start: 20170202, end: 20170202
  16. UPTRAVI [Suspect]
     Active Substance: SELEXIPAG
     Dosage: 600 UG, QD
     Route: 065
  17. ASPIRIN                            /00002701/ [Concomitant]
     Active Substance: ASPIRIN
  18. NEURONTIN [Concomitant]
     Active Substance: GABAPENTIN
  19. NORCO [Concomitant]
     Active Substance: ACETAMINOPHEN\HYDROCODONE BITARTRATE
  20. COMBIVENT RESPIMAT [Concomitant]
     Active Substance: ALBUTEROL SULFATE\IPRATROPIUM BROMIDE
  21. LIPITOR [Concomitant]
     Active Substance: ATORVASTATIN CALCIUM
  22. UPTRAVI [Suspect]
     Active Substance: SELEXIPAG
     Dosage: UNK
     Route: 065
     Dates: end: 20170201
  23. UPTRAVI [Suspect]
     Active Substance: SELEXIPAG
     Dosage: 600 UG, BID
     Route: 065
  24. COENZYME Q10 [Concomitant]
     Active Substance: UBIDECARENONE
  25. VOLTAREN [Concomitant]
     Active Substance: DICLOFENAC SODIUM
  26. NEXIUM [Concomitant]
     Active Substance: ESOMEPRAZOLE MAGNESIUM
  27. BACTROBAN [Concomitant]
     Active Substance: MUPIROCIN\MUPIROCIN CALCIUM

REACTIONS (14)
  - Bone pain [Unknown]
  - Pain [Unknown]
  - Headache [Unknown]
  - Unevaluable event [Unknown]
  - Fatigue [Not Recovered/Not Resolved]
  - Intermittent claudication [Unknown]
  - Migraine [Unknown]
  - Arthralgia [Recovering/Resolving]
  - Pain in jaw [Not Recovered/Not Resolved]
  - Myalgia [Unknown]
  - Bowel movement irregularity [Unknown]
  - Nausea [Unknown]
  - Neck pain [Unknown]
  - Neuralgia [Unknown]

NARRATIVE: CASE EVENT DATE: 20170202
